FAERS Safety Report 9284204 (Version 1)
Quarter: 2013Q2

REPORT INFORMATION
  Report Type: Spontaneous
  Country: US (occurrence: US)
  Receive Date: 20130510
  Receipt Date: 20130510
  Transmission Date: 20140414
  Serious: Yes (Death)
  Sender: FDA-Public Use
  Company Number: US-COVIDIEN/TYCO HEALTHCARE/MALLINCKRODT-T201301146

PATIENT
  Age: 52 Year
  Sex: Female
  Weight: 67.12 kg

DRUGS (5)
  1. FENTANYL TRANSDERMAL SYSTEM [Suspect]
     Indication: PAIN
     Dosage: 75 MCG/HR, Q 3 DAYS
     Route: 062
     Dates: start: 201302, end: 201302
  2. FENTANYL TRANSDERMAL SYSTEM [Suspect]
     Dosage: 100 MCG/HR, Q 3 DAYS
     Dates: start: 201303
  3. DILAUDID [Concomitant]
     Indication: BREAKTHROUGH PAIN
     Dosage: 8 MG, QID
     Route: 048
  4. OXYCONTIN [Concomitant]
     Dosage: UNK
     Dates: end: 201302
  5. FENTANYL [Concomitant]
     Dosage: UNK

REACTIONS (4)
  - Inappropriate schedule of drug administration [Unknown]
  - Breakthrough pain [Not Recovered/Not Resolved]
  - Application site pruritus [Not Recovered/Not Resolved]
  - Drug effect decreased [Not Recovered/Not Resolved]
